FAERS Safety Report 14985796 (Version 1)
Quarter: 2018Q2

REPORT INFORMATION
  Report Type: Spontaneous
  Country: US (occurrence: US)
  Receive Date: 20180607
  Receipt Date: 20180607
  Transmission Date: 20180711
  Serious: No
  Sender: FDA-Public Use
  Company Number: US-BIOCOMPATIBLES UK LTD-2018BTG01544

PATIENT
  Age: 19 Year
  Sex: Male
  Weight: 103 kg

DRUGS (3)
  1. VORAXAZE [Suspect]
     Active Substance: GLUCARPIDASE
     Indication: TOXICITY TO VARIOUS AGENTS
     Dosage: UNK
     Dates: start: 20180311, end: 20180311
  2. METHOTREXATE. [Concomitant]
     Active Substance: METHOTREXATE
     Dosage: SECOND CYCLE
     Dates: start: 20180311, end: 20180311
  3. METHOTREXATE. [Concomitant]
     Active Substance: METHOTREXATE
     Indication: OSTEOSARCOMA
     Dosage: FIRST CYCLE

REACTIONS (2)
  - Chemotherapeutic drug level increased [Unknown]
  - Blood creatinine increased [Unknown]
